FAERS Safety Report 4924542-5 (Version None)
Quarter: 2006Q1

REPORT INFORMATION
  Report Type: 
  Country: None (occurrence: None)
  Receive Date: 20060222
  Receipt Date: 20060208
  Transmission Date: 20060701
  Serious: Yes (Hospitalization)
  Sender: FDA-Public Use
  Company Number: A-CH2006-11553

PATIENT
  Age: 73 Year
  Sex: Female

DRUGS (10)
  1. BOSENTAN(BOSENTAN I,PHS TABLET 125 MG) (BOSENTAN) TABLET [Suspect]
     Indication: PULMONARY HYPERTENSION
     Dosage: 125 MG, BID, ORAL
     Route: 048
     Dates: start: 20031105, end: 20060124
  2. LOSARTAN POTASSIUM [Concomitant]
  3. ACENOCOUMAROL (ACENOCOUMAROL) [Concomitant]
  4. RISEDRONIC ACID (RISEDRONIC ACID) [Concomitant]
  5. DOMPERIDONE (DOMPERIDONE) [Concomitant]
  6. FLUOXETINE [Concomitant]
  7. CALCIUM (CALCIUM) [Concomitant]
  8. OMEPRAZOLE [Concomitant]
  9. HYDROCHLOROTHIAZIDE [Concomitant]
  10. GABAPENTIN [Concomitant]

REACTIONS (8)
  - ALANINE AMINOTRANSFERASE INCREASED [None]
  - ASPARTATE AMINOTRANSFERASE INCREASED [None]
  - BILE DUCT OBSTRUCTION [None]
  - BILE DUCT STONE [None]
  - BILIARY DILATATION [None]
  - BLOOD ALKALINE PHOSPHATASE INCREASED [None]
  - CHOLANGITIS [None]
  - JAUNDICE CHOLESTATIC [None]
